FAERS Safety Report 5370510-1 (Version None)
Quarter: 2007Q2

REPORT INFORMATION
  Report Type: 
  Country: None (occurrence: None)
  Receive Date: 20070625
  Receipt Date: 20070625
  Transmission Date: 20071010
  Serious: No
  Sender: FDA-Public Use
  Company Number: None

PATIENT
  Age: 68 Year

DRUGS (2)
  1. PERCOCET [Suspect]
     Indication: PAIN
     Dosage: PO
     Route: 048
     Dates: start: 20070317, end: 20070319
  2. ATIVAN [Concomitant]

REACTIONS (1)
  - CHEST PAIN [None]
